FAERS Safety Report 14726567 (Version 2)
Quarter: 2019Q3

REPORT INFORMATION
  Report Type: Spontaneous
  Country: US (occurrence: US)
  Receive Date: 20180406
  Receipt Date: 20190709
  Transmission Date: 20191004
  Serious: No
  Sender: FDA-Public Use
  Company Number: US-PFIZER INC-2018139781

PATIENT
  Age: 70 Year
  Sex: Female

DRUGS (2)
  1. METHOTREXATE SODIUM. [Suspect]
     Active Substance: METHOTREXATE SODIUM
     Indication: CREST SYNDROME
     Dosage: 15 MG, UNK
     Dates: start: 2013, end: 201711
  2. METHOTREXATE SODIUM. [Suspect]
     Active Substance: METHOTREXATE SODIUM
     Indication: RHEUMATOID ARTHRITIS
     Dosage: 20 MG, 1X/DAY
     Dates: end: 201801

REACTIONS (5)
  - Alopecia [Unknown]
  - Drug ineffective [Unknown]
  - Fatigue [Unknown]
  - Nausea [Unknown]
  - Condition aggravated [Unknown]
